FAERS Safety Report 22339518 (Version 1)
Quarter: 2023Q2

REPORT INFORMATION
  Report Type: Report from Study
  Country: TW (occurrence: TW)
  Receive Date: 20230518
  Receipt Date: 20230518
  Transmission Date: 20230722
  Serious: Yes (Hospitalization)
  Sender: FDA-Public Use
  Company Number: TW-ABBVIE-4770553

PATIENT
  Age: 18 Year
  Sex: Male
  Weight: 57 kg

DRUGS (2)
  1. HUMIRA [Suspect]
     Active Substance: ADALIMUMAB
     Indication: Colitis ulcerative
     Route: 058
     Dates: start: 20221230
  2. HUMIRA [Suspect]
     Active Substance: ADALIMUMAB
     Indication: Ankylosing spondylitis

REACTIONS (6)
  - Joint effusion [Unknown]
  - Osteonecrosis [Unknown]
  - Oedema [Unknown]
  - Arthralgia [Unknown]
  - Sacroiliitis [Unknown]
  - Intra-abdominal calcification [Unknown]

NARRATIVE: CASE EVENT DATE: 20230503
